FAERS Safety Report 14427197 (Version 1)
Quarter: 2018Q1

REPORT INFORMATION
  Report Type: Spontaneous
  Country: US (occurrence: US)
  Receive Date: 20180123
  Receipt Date: 20180123
  Transmission Date: 20180509
  Serious: No
  Sender: FDA-Public Use
  Company Number: US-IMPAX LABORATORIES, INC-2017-IPXL-02920

PATIENT
  Age: 73 Year
  Sex: Male
  Weight: 77 kg

DRUGS (4)
  1. PANTOPRAZOLE [Concomitant]
     Active Substance: PANTOPRAZOLE
     Indication: PRODUCT USED FOR UNKNOWN INDICATION
     Dosage: 40 MG, 1 /DAY
     Route: 048
  2. JANUMET [Concomitant]
     Active Substance: METFORMIN HYDROCHLORIDE\SITAGLIPTIN PHOSPHATE
     Indication: DIABETES MELLITUS
     Dosage: 50/500MG, 2 /DAY
     Route: 048
  3. RYTARY [Suspect]
     Active Substance: CARBIDOPA\LEVODOPA
     Indication: MOVEMENT DISORDER
     Dosage: 36.25/145 MG, 1 CAPSULE, 3 /DAY
     Route: 048
     Dates: start: 20170926, end: 2017
  4. RYTARY [Suspect]
     Active Substance: CARBIDOPA\LEVODOPA
     Dosage: 36.25/145 MG, 1 CAPSULE, 2 TIMES DAILY
     Route: 048
     Dates: start: 2017

REACTIONS (2)
  - Blood pressure decreased [Recovering/Resolving]
  - Dizziness [Recovered/Resolved]

NARRATIVE: CASE EVENT DATE: 2017
